FAERS Safety Report 8187502-X (Version None)
Quarter: 2012Q1

REPORT INFORMATION
  Report Type: 
  Country: None (occurrence: None)
  Receive Date: 20120306
  Receipt Date: 20120301
  Transmission Date: 20120608
  Serious: Yes (Hospitalization)
  Sender: FDA-Public Use
  Company Number: CA-B.I. PHARMACEUTICALS,INC./RIDGEFIELD-2012-CN-00477CN

PATIENT
  Age: 82 Year
  Sex: Male

DRUGS (8)
  1. BISOPROLOL FUMARATE [Concomitant]
     Dosage: 5 MG
  2. PANTOPRAZOLE [Concomitant]
     Dosage: 40 MG
  3. PRADAXA [Suspect]
     Indication: ATRIAL FIBRILLATION
     Dosage: 300 MG
     Route: 048
     Dates: start: 20110801
  4. SYNTHROID [Concomitant]
     Dosage: 50 MCG
  5. AMIODARONE HCL [Concomitant]
     Dosage: 200 MG
  6. CRESTOR [Concomitant]
     Dosage: 10 MG
  7. MICARDIS [Concomitant]
     Dosage: 40 MG
  8. FLOMAX [Concomitant]
     Dosage: 0.54 MG

REACTIONS (2)
  - HEADACHE [None]
  - HOSPITALISATION [None]
